FAERS Safety Report 12411683 (Version 1)
Quarter: 2016Q2

REPORT INFORMATION
  Report Type: Spontaneous
  Country: JP (occurrence: JP)
  Receive Date: 20160527
  Receipt Date: 20160527
  Transmission Date: 20160815
  Serious: Yes (Other)
  Sender: FDA-Public Use
  Company Number: JP-ROCHE-1750458

PATIENT
  Age: 82 Year
  Sex: Female

DRUGS (4)
  1. TOCLASE [Concomitant]
     Active Substance: PENTOXYVERINE
     Indication: INFLUENZA
     Route: 048
     Dates: start: 20160316, end: 20160316
  2. TAMIFLU [Suspect]
     Active Substance: OSELTAMIVIR PHOSPHATE
     Indication: INFLUENZA
     Route: 048
     Dates: start: 20160316, end: 20160316
  3. PL [Concomitant]
     Active Substance: ACETAMINOPHEN\CAFFEINE\PROMETHAZINE\SALICYLAMIDE
     Indication: INFLUENZA
     Route: 048
     Dates: start: 20160316, end: 20160316
  4. CALONAL [Concomitant]
     Active Substance: ACETAMINOPHEN
     Indication: INFLUENZA
     Dosage: TAKEN FOR FEVER
     Route: 048
     Dates: start: 20160316, end: 20160316

REACTIONS (5)
  - Hallucination, auditory [Recovered/Resolved]
  - Hallucination [Recovered/Resolved]
  - Soliloquy [Unknown]
  - Insomnia [Unknown]
  - Cerebral infarction [Unknown]

NARRATIVE: CASE EVENT DATE: 20160316
